FAERS Safety Report 12421238 (Version 2)
Quarter: 2016Q3

REPORT INFORMATION
  Report Type: Report from Study
  Country: AE (occurrence: AE)
  Receive Date: 20160531
  Receipt Date: 20160714
  Transmission Date: 20161109
  Serious: Yes (Other)
  Sender: FDA-Public Use
  Company Number: AE-SYMPLMED PHARMACEUTICALS-2016SYMPLMED000228

PATIENT

DRUGS (3)
  1. ALLOPURINOL SODIUM. [Concomitant]
     Active Substance: ALLOPURINOL SODIUM
     Indication: GOUT
     Dosage: 200 MG, QD
     Dates: start: 201502
  2. COVERSYL [Suspect]
     Active Substance: PERINDOPRIL
     Indication: HYPERTENSION
     Dosage: 10 MG, QD
     Route: 065
     Dates: start: 201512, end: 20160306
  3. PAS                                /00000304/ [Concomitant]
     Indication: GOUT
     Dosage: 75 MG, QD
     Dates: start: 201501

REACTIONS (1)
  - Sexual dysfunction [Recovering/Resolving]

NARRATIVE: CASE EVENT DATE: 2016
